FAERS Safety Report 7254183-9 (Version None)
Quarter: 2011Q1

REPORT INFORMATION
  Report Type: 
  Country: None (occurrence: None)
  Receive Date: 20110129
  Receipt Date: 20100211
  Transmission Date: 20110831
  Serious: No
  Sender: FDA-Public Use
  Company Number: US-ABBOTT-10P-163-0626004-00

PATIENT
  Sex: Female

DRUGS (5)
  1. CELEXA [Concomitant]
     Indication: DEPRESSION
  2. PREMPRO [Concomitant]
     Indication: HORMONE REPLACEMENT THERAPY
  3. HUMIRA [Suspect]
     Indication: PSORIASIS
     Dates: start: 20090615
  4. SYNTHROID [Concomitant]
     Indication: THYROID DISORDER
  5. DOVENEX CREAM [Concomitant]
     Indication: PSORIASIS

REACTIONS (2)
  - OPEN WOUND [None]
  - STAPHYLOCOCCAL INFECTION [None]
